FAERS Safety Report 9752676 (Version 1)
Quarter: 2013Q4

REPORT INFORMATION
  Report Type: Spontaneous
  Country: IT (occurrence: None)
  Receive Date: 20131211
  Receipt Date: 20131211
  Transmission Date: 20140711
  Serious: Yes (Other)
  Sender: FDA-Public Use
  Company Number: 2057922

PATIENT
  Age: 61 Year
  Sex: Male

DRUGS (5)
  1. GEMCITABINE [Suspect]
     Indication: LUNG NEOPLASM MALIGNANT
     Dosage: /SQ. METER, CYCLICAL (NOT OTHERWISE SPECIFIED)
     Route: 042
     Dates: start: 20131106, end: 20131113
  2. CARBOPLATIN [Concomitant]
  3. CILOSTAZOL [Concomitant]
  4. CARDIOASPIRIN [Concomitant]
  5. AMINO ACIDS NOS W/VITAMINS NOS [Concomitant]

REACTIONS (2)
  - Bursitis [None]
  - Thrombocytopenia [None]
